FAERS Safety Report 21137425 (Version 1)
Quarter: 2022Q3

REPORT INFORMATION
  Report Type: Spontaneous
  Country: US (occurrence: US)
  Receive Date: 20220727
  Receipt Date: 20220727
  Transmission Date: 20221027
  Serious: No
  Sender: FDA-Public Use
  Company Number: US-VELOXIS PHARMACEUTCALS-2022VELUS-000032

PATIENT
  Sex: Female
  Weight: 65 kg

DRUGS (6)
  1. ENVARSUS XR [Suspect]
     Active Substance: TACROLIMUS
     Indication: Renal transplant
     Dosage: 6 MILLIGRAM
  2. ENVARSUS XR [Suspect]
     Active Substance: TACROLIMUS
     Dosage: 13 MILLIGRAM
     Dates: start: 20220121
  3. ENVARSUS XR [Suspect]
     Active Substance: TACROLIMUS
     Dosage: 16 MILLIGRAM
     Dates: start: 20220124
  4. ENVARSUS XR [Suspect]
     Active Substance: TACROLIMUS
     Dosage: 10 MILLIGRAM
  5. ENVARSUS XR [Suspect]
     Active Substance: TACROLIMUS
     Dosage: 8 MILLIGRAM
     Dates: start: 20220204
  6. METRONIDAZOLE [Concomitant]
     Active Substance: METRONIDAZOLE
     Indication: Gastrointestinal disorder
     Dosage: 250 MILLIGRAM, BID
     Route: 048

REACTIONS (5)
  - Drug level increased [Not Recovered/Not Resolved]
  - Fluid retention [Not Recovered/Not Resolved]
  - Weight increased [Not Recovered/Not Resolved]
  - Tremor [Not Recovered/Not Resolved]
  - Blood creatinine increased [Not Recovered/Not Resolved]

NARRATIVE: CASE EVENT DATE: 20220203
